FAERS Safety Report 9025233 (Version 2)
Quarter: 2013Q1

REPORT INFORMATION
  Report Type: Report from Study
  Country: FR (occurrence: FR)
  Receive Date: 20130122
  Receipt Date: 20130206
  Transmission Date: 20140127
  Serious: Yes (Death)
  Sender: FDA-Public Use
  Company Number: FR-ROCHE-1181945

PATIENT
  Sex: Female
  Weight: 50 kg

DRUGS (2)
  1. BEVACIZUMAB [Suspect]
     Indication: BREAST CANCER
     Route: 042
     Dates: start: 20081006, end: 20121015
  2. TAMOXIFENE [Concomitant]
     Indication: DISEASE PROGRESSION
     Route: 048
     Dates: start: 20121109, end: 20130102

REACTIONS (1)
  - Lung infection [Fatal]
